FAERS Safety Report 18846134 (Version 6)
Quarter: 2021Q3

REPORT INFORMATION
  Report Type: Spontaneous
  Country: US (occurrence: US)
  Receive Date: 20210204
  Receipt Date: 20210913
  Transmission Date: 20211014
  Serious: Yes (Death, Hospitalization, Other)
  Sender: FDA-Public Use
  Company Number: US-PFIZER INC-2020423004

PATIENT
  Age: 75 Year
  Sex: Female

DRUGS (3)
  1. IBRANCE [Suspect]
     Active Substance: PALBOCICLIB
     Indication: HEPATIC CIRRHOSIS
     Dosage: 125 MG
     Dates: start: 20200624
  2. IBRANCE [Suspect]
     Active Substance: PALBOCICLIB
     Dosage: 100 MG
     Dates: start: 20210204
  3. IBRANCE [Suspect]
     Active Substance: PALBOCICLIB
     Dosage: 100 MG
     Dates: start: 20200629

REACTIONS (7)
  - Sepsis [Unknown]
  - Off label use [Unknown]
  - Renal disorder [Unknown]
  - Urinary tract infection [Unknown]
  - Death [Fatal]
  - Neoplasm recurrence [Unknown]
  - Memory impairment [Unknown]

NARRATIVE: CASE EVENT DATE: 20200624
